FAERS Safety Report 14197651 (Version 2)
Quarter: 2018Q1

REPORT INFORMATION
  Report Type: Spontaneous
  Country: AR (occurrence: AR)
  Receive Date: 20171116
  Receipt Date: 20180319
  Transmission Date: 20180508
  Serious: Yes (Other)
  Sender: FDA-Public Use
  Company Number: AR-AMGEN-ARGSP2017172528

PATIENT
  Age: 76 Year
  Sex: Male

DRUGS (1)
  1. ENBREL [Suspect]
     Active Substance: ETANERCEPT
     Indication: RHEUMATOID ARTHRITIS
     Dosage: 50 MG, QWK
     Route: 065
     Dates: start: 20100705

REACTIONS (3)
  - Prostatic specific antigen increased [Recovering/Resolving]
  - Prostatic disorder [Recovering/Resolving]
  - Carcinoid tumour of the prostate [Unknown]

NARRATIVE: CASE EVENT DATE: 201709
